FAERS Safety Report 10004506 (Version 2)
Quarter: 2014Q2

REPORT INFORMATION
  Report Type: Spontaneous
  Country: US (occurrence: US)
  Receive Date: 20140312
  Receipt Date: 20140617
  Transmission Date: 20141212
  Serious: Yes (Other)
  Sender: FDA-Public Use
  Company Number: US-JNJFOC-20140303032

PATIENT
  Age: 52 Year
  Sex: Female
  Weight: 65.77 kg

DRUGS (11)
  1. SIMPONI [Suspect]
     Indication: RHEUMATOID ARTHRITIS
     Route: 042
     Dates: start: 201311
  2. SOLU-MEDROL [Suspect]
     Indication: RHEUMATOID ARTHRITIS
     Route: 042
     Dates: start: 2012
  3. PREDNISONE [Concomitant]
     Indication: RHEUMATOID ARTHRITIS
     Route: 048
     Dates: start: 201304
  4. SUMATRIPTAN [Concomitant]
     Indication: MIGRAINE
     Route: 048
  5. LASIX [Concomitant]
     Indication: OEDEMA PERIPHERAL
     Route: 048
  6. POTASSIUM CHLORIDE [Concomitant]
     Indication: OEDEMA PERIPHERAL
     Route: 048
  7. ZOLOFT [Concomitant]
     Indication: DEPRESSION
     Route: 048
  8. ESTRADIOL [Concomitant]
     Indication: HYSTERECTOMY
     Dosage: LOW DOSE DAILY AT NIGHT
     Route: 065
  9. LOSARTAN [Concomitant]
     Indication: BLOOD PRESSURE
     Route: 048
  10. CLONAZEPAM [Concomitant]
     Indication: ANXIETY
     Dosage: QUARTER TABLET AS NEEDED TWICE A DAY
     Route: 048
     Dates: start: 2000
  11. ADVIL [Concomitant]
     Route: 048

REACTIONS (18)
  - Blood pressure increased [Not Recovered/Not Resolved]
  - Sjogren^s syndrome [Not Recovered/Not Resolved]
  - Chest pain [Not Recovered/Not Resolved]
  - Infusion related reaction [Not Recovered/Not Resolved]
  - Drug ineffective [Not Recovered/Not Resolved]
  - Fatigue [Not Recovered/Not Resolved]
  - Hypoaesthesia [Not Recovered/Not Resolved]
  - Nausea [Not Recovered/Not Resolved]
  - Weight increased [Not Recovered/Not Resolved]
  - Alopecia [Not Recovered/Not Resolved]
  - Eye disorder [Not Recovered/Not Resolved]
  - Body height decreased [Not Recovered/Not Resolved]
  - Decreased appetite [Not Recovered/Not Resolved]
  - Arthritis [Not Recovered/Not Resolved]
  - Fall [Not Recovered/Not Resolved]
  - Dyspnoea [Not Recovered/Not Resolved]
  - Oral mucosal blistering [Not Recovered/Not Resolved]
  - Rash generalised [Not Recovered/Not Resolved]
